FAERS Safety Report 9003178 (Version 1)
Quarter: 2013Q1

REPORT INFORMATION
  Report Type: Spontaneous
  Country: US (occurrence: US)
  Receive Date: 20130108
  Receipt Date: 20130108
  Transmission Date: 20140127
  Serious: Yes (Death)
  Sender: FDA-Public Use
  Company Number: US-BAYER-2013-001927

PATIENT
  Age: 45 Year
  Sex: Female

DRUGS (12)
  1. DIPHENHYDRAMINE HYDROCHLORIDE [Suspect]
  2. HYDROMORPHONE [Suspect]
  3. HYDROXYZINE [Suspect]
  4. GABAPENTIN [Suspect]
  5. MIRTAZAPINE [Suspect]
  6. ZOLPIDEM [Suspect]
  7. DEXTROMETHORPHAN [Suspect]
  8. PROMETHAZINE [Suspect]
  9. FLUOXETINE [Suspect]
  10. ACETAMINOPHEN W/HYDROCODONE [Suspect]
  11. ALPRAZOLAM [Suspect]
  12. LORAZEPAM [Suspect]

REACTIONS (1)
  - Drug abuse [Fatal]
